FAERS Safety Report 9215737 (Version 1)
Quarter: 2013Q2

REPORT INFORMATION
  Report Type: Spontaneous
  Country: GB (occurrence: GB)
  Receive Date: 20130408
  Receipt Date: 20130408
  Transmission Date: 20140414
  Serious: Yes (Other)
  Sender: FDA-Public Use
  Company Number: GB-MERCK-1304GBR002224

PATIENT
  Age: 46 Year
  Sex: Male

DRUGS (5)
  1. EZETROL [Suspect]
     Route: 048
  2. CANDESARTAN [Concomitant]
  3. LIPITOR [Concomitant]
  4. GLICLAZIDE [Concomitant]
     Dosage: 80 MG 2 X 2DAY
  5. METFORMIN [Concomitant]
     Dosage: 500 MG, 2 X 2 DAY

REACTIONS (3)
  - Arterial stent insertion [Unknown]
  - Arterial stenosis [Unknown]
  - Chest pain [Unknown]
